FAERS Safety Report 16666755 (Version 2)
Quarter: 2019Q3

REPORT INFORMATION
  Report Type: Spontaneous
  Country: US (occurrence: US)
  Receive Date: 20190805
  Receipt Date: 20190806
  Transmission Date: 20191004
  Serious: Yes (Other)
  Sender: FDA-Public Use
  Company Number: US-ACCORD-106984

PATIENT
  Age: 62 Year
  Sex: Female

DRUGS (5)
  1. CALTRATE 600D [Concomitant]
     Dates: start: 2005
  2. NORVASC [Concomitant]
     Active Substance: AMLODIPINE BESYLATE
     Dates: start: 2005
  3. DOCETAXEL ACCORD [Suspect]
     Active Substance: DOCETAXEL
     Indication: BREAST CANCER
     Dates: start: 20120723, end: 20121105
  4. CYTOXAN [Suspect]
     Active Substance: CYCLOPHOSPHAMIDE
     Indication: BREAST CANCER
     Dates: start: 20120723, end: 20121105
  5. DOXORUBICIN [Suspect]
     Active Substance: DOXORUBICIN
     Indication: BREAST CANCER
     Dates: start: 20120723, end: 20121105

REACTIONS (1)
  - Alopecia [Not Recovered/Not Resolved]

NARRATIVE: CASE EVENT DATE: 201207
